FAERS Safety Report 12523749 (Version 1)
Quarter: 2016Q3

REPORT INFORMATION
  Report Type: Spontaneous
  Country: FR (occurrence: FR)
  Receive Date: 20160704
  Receipt Date: 20160704
  Transmission Date: 20161109
  Serious: Yes (Hospitalization)
  Sender: FDA-Public Use
  Company Number: FR-ROCHE-1785884

PATIENT
  Age: 76 Year
  Sex: Male

DRUGS (7)
  1. LERCAN [Concomitant]
     Active Substance: LERCANIDIPINE
  2. TAHOR [Concomitant]
     Active Substance: ATORVASTATIN CALCIUM
  3. ZELBORAF [Suspect]
     Active Substance: VEMURAFENIB
     Indication: MALIGNANT MELANOMA
     Route: 048
     Dates: start: 20150216
  4. NOVOMIX [Concomitant]
     Active Substance: INSULIN ASPART
     Dosage: 30 18IU IN THE EVENING
     Route: 065
  5. APIDRA [Concomitant]
     Active Substance: INSULIN GLULISINE
  6. FOZIRETIC [Concomitant]
     Active Substance: FOSINOPRIL SODIUM\HYDROCHLOROTHIAZIDE
     Dosage: DAILY
     Route: 065
  7. ALDACTONE [Concomitant]
     Active Substance: SPIRONOLACTONE
     Dosage: DAILY
     Route: 065

REACTIONS (2)
  - Antidiuretic hormone abnormality [Recovered/Resolved]
  - Hyponatraemia [Recovered/Resolved]

NARRATIVE: CASE EVENT DATE: 20150316
